FAERS Safety Report 5428448-7 (Version None)
Quarter: 2007Q3

REPORT INFORMATION
  Report Type: 
  Country: None (occurrence: None)
  Receive Date: 20070823
  Receipt Date: 20070810
  Transmission Date: 20080115
  Serious: Yes (Hospitalization)
  Sender: FDA-Public Use
  Company Number: 2007BI004643

PATIENT
  Age: 61 Year
  Sex: Female

DRUGS (10)
  1. NATALIZUMAB [Suspect]
     Indication: MULTIPLE SCLEROSIS
     Dosage: 300 MG; QM; IV
     Route: 042
     Dates: start: 20061110
  2. NEURONTIN [Concomitant]
  3. AUGMENTIN '125' [Concomitant]
  4. PRILOSEC [Concomitant]
  5. PROVIGIL [Concomitant]
  6. KLONOPIN [Concomitant]
  7. ZOCOR [Concomitant]
  8. ZETIA [Concomitant]
  9. PROZAC [Concomitant]
  10. METOPROLOL SUCCINATE [Concomitant]

REACTIONS (3)
  - DYSPNOEA [None]
  - LUNG ADENOCARCINOMA [None]
  - PAIN IN EXTREMITY [None]
